FAERS Safety Report 10852369 (Version 1)
Quarter: 2015Q1

REPORT INFORMATION
  Report Type: Spontaneous
  Country: US (occurrence: US)
  Receive Date: 20150222
  Receipt Date: 20150222
  Transmission Date: 20150721
  Serious: No
  Sender: FDA-Public Use
  Company Number: US-ALLERGAN-1425763US

PATIENT
  Age: 29 Year
  Sex: Female

DRUGS (14)
  1. MELATONIN [Concomitant]
     Active Substance: MELATONIN
     Dosage: UNK
  2. BOTOX [Suspect]
     Active Substance: ONABOTULINUMTOXINA
     Indication: MIGRAINE
     Dosage: 155 UNITS, SINGLE
     Route: 030
     Dates: start: 20141215, end: 20141215
  3. KLONOPIN [Concomitant]
     Active Substance: CLONAZEPAM
     Dosage: UNK
  4. FLEXERIL [Concomitant]
     Active Substance: CYCLOBENZAPRINE HYDROCHLORIDE
     Dosage: UNK
  5. POTASSIUM CHLORIDE. [Concomitant]
     Active Substance: POTASSIUM CHLORIDE
     Dosage: UNK
  6. BOTOX [Suspect]
     Active Substance: ONABOTULINUMTOXINA
     Dosage: UNK, SINGLE
     Route: 030
     Dates: start: 20141215, end: 20141215
  7. CYMBALTA [Concomitant]
     Active Substance: DULOXETINE HYDROCHLORIDE
     Dosage: UNK
  8. LAMICTAL [Concomitant]
     Active Substance: LAMOTRIGINE
     Dosage: UNK
  9. NORTRIPTYLINE [Concomitant]
     Active Substance: NORTRIPTYLINE
     Dosage: UNK
  10. TOPAMAX [Concomitant]
     Active Substance: TOPIRAMATE
     Dosage: UNK
  11. METFORMIN [Concomitant]
     Active Substance: METFORMIN HYDROCHLORIDE
     Dosage: UNK
  12. PROPRANOLOL [Concomitant]
     Active Substance: PROPRANOLOL\PROPRANOLOL HYDROCHLORIDE
     Dosage: UNK
  13. LATUDA [Concomitant]
     Active Substance: LURASIDONE HYDROCHLORIDE
     Dosage: UNK
  14. MOBIC [Concomitant]
     Active Substance: MELOXICAM
     Dosage: UNK

REACTIONS (1)
  - Vision blurred [Recovering/Resolving]

NARRATIVE: CASE EVENT DATE: 20141215
